FAERS Safety Report 5689693-9 (Version None)
Quarter: 2008Q1

REPORT INFORMATION
  Report Type: 
  Country: None (occurrence: None)
  Receive Date: 20080328
  Receipt Date: 20080312
  Transmission Date: 20080703
  Serious: Yes (Hospitalization)
  Sender: FDA-Public Use
  Company Number: DSA_31572_2008

PATIENT
  Sex: Female

DRUGS (2)
  1. LORAZEPAM [Suspect]
     Dosage: (17 MG 1X , ORAL
     Route: 048
     Dates: start: 20080228, end: 20080228
  2. ETHANOL (ALCOHOL - ETHANOL) [Suspect]
     Dosage: 1-2 GLASSES 1X, ORAL
     Route: 048
     Dates: start: 20080228, end: 20080228

REACTIONS (4)
  - INTENTIONAL OVERDOSE [None]
  - SOMNOLENCE [None]
  - SUICIDE ATTEMPT [None]
  - VOMITING [None]
